FAERS Safety Report 11212666 (Version 1)
Quarter: 2015Q2

REPORT INFORMATION
  Report Type: Spontaneous
  Country: US (occurrence: None)
  Receive Date: 20150622
  Receipt Date: 20150622
  Transmission Date: 20150821
  Serious: Yes (Life-Threatening, Hospitalization)
  Sender: FDA-Public Use
  Company Number: None

PATIENT
  Age: 65 Year
  Sex: Female
  Weight: 52.62 kg

DRUGS (12)
  1. COREG [Concomitant]
     Active Substance: CARVEDILOL
  2. VITA [Concomitant]
  3. CALCIUM [Concomitant]
     Active Substance: CALCIUM
  4. PREMARIN [Suspect]
     Active Substance: ESTROGENS, CONJUGATED
     Indication: ARTIFICIAL MENOPAUSE
     Dosage: 1 PILL ONCE DAILY
     Route: 048
     Dates: start: 19840615, end: 20141216
  5. ALEVE [Concomitant]
     Active Substance: NAPROXEN SODIUM
  6. SOMA [Concomitant]
     Active Substance: CARISOPRODOL
  7. VITAMIN B12 [Concomitant]
     Active Substance: CYANOCOBALAMIN
  8. XANAX [Concomitant]
     Active Substance: ALPRAZOLAM
  9. VITAMIN A+E [Concomitant]
  10. MELATONIN [Concomitant]
     Active Substance: MELATONIN
  11. PREMARIN [Suspect]
     Active Substance: ESTROGENS, CONJUGATED
     Indication: PROPHYLAXIS
     Dosage: 1 PILL ONCE DAILY
     Route: 048
     Dates: start: 19840615, end: 20141216
  12. POTASSIUM [Concomitant]
     Active Substance: POTASSIUM

REACTIONS (5)
  - Emotional disorder [None]
  - Stress [None]
  - Breast cancer female [None]
  - Pain [None]
  - Mental disorder [None]

NARRATIVE: CASE EVENT DATE: 20141216
